FAERS Safety Report 4943611-7 (Version None)
Quarter: 2006Q1

REPORT INFORMATION
  Report Type: 
  Country: None (occurrence: None)
  Receive Date: 20060310
  Receipt Date: 20060214
  Transmission Date: 20060701
  Serious: Yes (Death, Other)
  Sender: FDA-Public Use
  Company Number: 2006-00355

PATIENT
  Age: 68 Year
  Sex: Female

DRUGS (3)
  1. VELCADE [Suspect]
     Indication: MULTIPLE MYELOMA
     Dates: start: 20041013
  2. BISPHOSPHONATES [Concomitant]
  3. DEXAMETHASONE TAB [Concomitant]

REACTIONS (9)
  - ACUTE PULMONARY OEDEMA [None]
  - CARDIAC FAILURE CONGESTIVE [None]
  - CARDIOMEGALY [None]
  - CONDITION AGGRAVATED [None]
  - DISEASE PROGRESSION [None]
  - LUNG DISORDER [None]
  - LUNG INFILTRATION [None]
  - OLIGURIA [None]
  - RENAL IMPAIRMENT [None]
